FAERS Safety Report 7076129-9 (Version None)
Quarter: 2010Q4

REPORT INFORMATION
  Report Type: 
  Country: None (occurrence: None)
  Receive Date: 20101021
  Receipt Date: 20101006
  Transmission Date: 20110411
  Serious: Yes (Hospitalization)
  Sender: FDA-Public Use
  Company Number: 2010MA003368

PATIENT
  Age: 38 Year
  Sex: Female
  Weight: 105 kg

DRUGS (2)
  1. DIAZEPAM [Suspect]
     Dosage: 250 MG;X1;PO
     Route: 048
  2. FLURAZEPAM [Suspect]
     Dosage: 525 MG;X1;PO
     Route: 048

REACTIONS (11)
  - BRAIN CONTUSION [None]
  - COMA [None]
  - DRUG TOXICITY [None]
  - ENCEPHALOPATHY [None]
  - INCORRECT DOSE ADMINISTERED [None]
  - METABOLIC DISORDER [None]
  - RIB FRACTURE [None]
  - ROAD TRAFFIC ACCIDENT [None]
  - SKULL FRACTURE [None]
  - SUBARACHNOID HAEMORRHAGE [None]
  - TRAUMATIC INTRACRANIAL HAEMORRHAGE [None]
